FAERS Safety Report 9587425 (Version 1)
Quarter: 2013Q4

REPORT INFORMATION
  Report Type: Spontaneous
  Country: US (occurrence: US)
  Receive Date: 20131003
  Receipt Date: 20131003
  Transmission Date: 20140711
  Serious: Yes (Death)
  Sender: FDA-Public Use
  Company Number: PHEH2013US020279

PATIENT
  Age: 32 Year
  Sex: Female

DRUGS (2)
  1. FANAPT [Suspect]
     Indication: SCHIZOPHRENIA
     Dosage: 8 MG, BID
     Route: 048
  2. BENADRYL//DIPHENHYDRAMINE HYDROCHLORIDE [Concomitant]

REACTIONS (1)
  - Completed suicide [Fatal]
